FAERS Safety Report 10223086 (Version 1)
Quarter: 2014Q2

REPORT INFORMATION
  Report Type: Spontaneous
  Country: US (occurrence: US)
  Receive Date: 20140607
  Receipt Date: 20140607
  Transmission Date: 20141212
  Serious: Yes (Other)
  Sender: FDA-Public Use
  Company Number: PHHY2014US068483

PATIENT
  Age: 34 Year
  Sex: Female

DRUGS (30)
  1. NORTRIPTYLINE [Suspect]
     Indication: BIPOLAR DISORDER
  2. PAROXETINE [Suspect]
     Indication: BIPOLAR DISORDER
  3. CLOMIPRAMINE [Suspect]
     Indication: BIPOLAR DISORDER
  4. VALPROIC ACID [Suspect]
  5. CARBAMAZEPINE [Suspect]
  6. METHYLPHENIDATE [Suspect]
     Indication: NARCOLEPSY
  7. IMIPRAMINE [Suspect]
     Indication: NARCOLEPSY
  8. CHLORPROMAZINE [Suspect]
     Indication: BIPOLAR DISORDER
  9. TRIFLUOPERAZINE [Suspect]
     Indication: BIPOLAR DISORDER
  10. HALOPERIDOL [Suspect]
     Indication: BIPOLAR DISORDER
  11. RISPERIDONE [Suspect]
     Indication: BIPOLAR DISORDER
  12. QUETIAPINE [Suspect]
     Indication: BIPOLAR DISORDER
  13. DESIPRAMINE [Suspect]
     Indication: BIPOLAR DISORDER
  14. FLUOXETINE [Suspect]
     Indication: BIPOLAR DISORDER
  15. BUSPIRONE [Suspect]
     Indication: BIPOLAR DISORDER
  16. VENLAFAXINE [Suspect]
     Indication: BIPOLAR DISORDER
  17. TOPIRAMATE [Suspect]
  18. SERTRALINE [Suspect]
  19. CITALOPRAM [Suspect]
  20. PEMOLINE [Suspect]
     Indication: NARCOLEPSY
  21. BUPROPION [Suspect]
  22. ZONISAMIDE [Suspect]
     Dosage: 25 MG, BID
  23. MODAFINIL [Suspect]
     Indication: NARCOLEPSY
  24. PROTRIPTYLINE [Concomitant]
     Indication: DEPRESSION
  25. ARIPIPRAZOLE [Concomitant]
     Dosage: 15 MG, BID
  26. ARIPIPRAZOLE [Concomitant]
     Dosage: 20 MG, QAM
  27. ARIPIPRAZOLE [Concomitant]
     Dosage: 15 MG, QHS
  28. ARIPIPRAZOLE [Concomitant]
     Dosage: 15 MG, BID
  29. ESCITALOPRAM [Concomitant]
     Dosage: 20 MG, DAILY
  30. ESCITALOPRAM [Concomitant]
     Dosage: 15 MG, DAILY

REACTIONS (9)
  - Depression [Unknown]
  - Narcolepsy [Unknown]
  - Mania [Unknown]
  - Psychotic disorder [Unknown]
  - Sedation [Unknown]
  - Bradycardia [Unknown]
  - Abnormal behaviour [Unknown]
  - Drug intolerance [Unknown]
  - Drug ineffective [Unknown]
